FAERS Safety Report 14279220 (Version 1)
Quarter: 2017Q4

REPORT INFORMATION
  Report Type: Report from Study
  Country: BR (occurrence: BR)
  Receive Date: 20171212
  Receipt Date: 20171212
  Transmission Date: 20180321
  Serious: Yes (Death, Hospitalization)
  Sender: FDA-Public Use
  Company Number: BR-BAYER-2017-232302

PATIENT
  Age: 65 Year
  Sex: Female

DRUGS (2)
  1. NEXAVAR [Suspect]
     Active Substance: SORAFENIB
     Indication: HEPATOCELLULAR CARCINOMA
     Dosage: 800 MG, QD
     Route: 048
     Dates: start: 20170601, end: 20171115
  2. NEXAVAR [Suspect]
     Active Substance: SORAFENIB
     Indication: HEPATOCELLULAR CARCINOMA
     Dosage: 800 MG, QD
     Route: 048
     Dates: start: 20171117

REACTIONS (7)
  - Acute kidney injury [Fatal]
  - Hepatocellular carcinoma [Fatal]
  - Pain [None]
  - Decreased appetite [Fatal]
  - Dehydration [Fatal]
  - Nausea [None]
  - Type 2 diabetes mellitus [Fatal]

NARRATIVE: CASE EVENT DATE: 20171118
